FAERS Safety Report 24137235 (Version 1)
Quarter: 2024Q3

REPORT INFORMATION
  Report Type: Spontaneous
  Country: US (occurrence: None)
  Receive Date: 20240724
  Receipt Date: 20240724
  Transmission Date: 20241016
  Serious: Yes (Other)
  Sender: Public
  Company Number: None

PATIENT
  Age: 36 Year
  Sex: Female
  Weight: 57.15 kg

DRUGS (15)
  1. SULFASALAZINE [Suspect]
     Active Substance: SULFASALAZINE
     Indication: Juvenile idiopathic arthritis
     Dosage: 60 TABLETS TWICE A DAY ORAL?
     Route: 048
     Dates: start: 20240514, end: 20240715
  2. ENBREL [Concomitant]
     Active Substance: BENZYL ALCOHOL\ETANERCEPT
  3. HYDROXYCHLOROQUINE [Concomitant]
     Active Substance: HYDROXYCHLOROQUINE
  4. ESCITALOPRAM [Concomitant]
     Active Substance: ESCITALOPRAM OXALATE
  5. AMITRIPTLINE [Concomitant]
  6. PROPRANOLOL [Concomitant]
     Active Substance: PROPRANOLOL HYDROCHLORIDE
  7. RIZATRIPTAN [Concomitant]
     Active Substance: RIZATRIPTAN
  8. METHOCARBAMOL [Concomitant]
     Active Substance: METHOCARBAMOL
  9. ALPRAZOLAM [Concomitant]
     Active Substance: ALPRAZOLAM
  10. ONDANSETRON [Concomitant]
     Active Substance: ONDANSETRON
  11. METHYLCOBALAMIN [Concomitant]
     Active Substance: METHYLCOBALAMIN
  12. GLUCOSAMINE [Concomitant]
     Active Substance: GLUCOSAMINE
  13. VITAMINS [Concomitant]
     Active Substance: VITAMINS
  14. ZYRTEC [Concomitant]
     Active Substance: CETIRIZINE HYDROCHLORIDE
  15. PRILOSEC [Concomitant]
     Active Substance: OMEPRAZOLE MAGNESIUM

REACTIONS (4)
  - Suicidal ideation [None]
  - Self-injurious ideation [None]
  - Personality change [None]
  - Mental disorder [None]

NARRATIVE: CASE EVENT DATE: 20240713
